FAERS Safety Report 5242154-3 (Version None)
Quarter: 2007Q1

REPORT INFORMATION
  Report Type: 
  Country: None (occurrence: None)
  Receive Date: 20070213
  Receipt Date: 20070201
  Transmission Date: 20070707
  Serious: Yes (Other)
  Sender: FDA-Public Use
  Company Number: 2007RL000035

PATIENT
  Age: 54 Year
  Sex: Female
  Weight: 68.0396 kg

DRUGS (4)
  1. OMACOR [Suspect]
     Indication: BLOOD TRIGLYCERIDES INCREASED
     Dosage: 1 GM BID PO
     Route: 048
     Dates: start: 20061101, end: 20070130
  2. ZETIA [Concomitant]
  3. TRICOR [Concomitant]
  4. SYNTHROID [Concomitant]

REACTIONS (5)
  - BLINDNESS TRANSIENT [None]
  - BLINDNESS UNILATERAL [None]
  - EYELID BLEEDING [None]
  - EYELID VASCULAR DISORDER [None]
  - VASCULAR MALFORMATION PERIPHERAL [None]
